FAERS Safety Report 5672291-0 (Version None)
Quarter: 2008Q1

REPORT INFORMATION
  Report Type: 
  Country: None (occurrence: None)
  Receive Date: 20080319
  Receipt Date: 20080310
  Transmission Date: 20080703
  Serious: Yes (Other)
  Sender: FDA-Public Use
  Company Number: PHFR2008IE00795

PATIENT
  Age: 55 Year
  Sex: Female

DRUGS (15)
  1. LIPITOR [Concomitant]
     Dosage: 10MG / DAY
     Route: 048
  2. ACETYLSALICYLIC ACID [Concomitant]
     Dosage: 75MG / DAY
     Route: 048
  3. ZOTON [Concomitant]
     Dosage: 30MG / DAY
     Route: 048
  4. RIVOTRIL [Concomitant]
     Dosage: 0.5 MG, TID
     Route: 048
  5. KEMADREN [Concomitant]
     Dosage: 2.5MG / DAY
     Route: 048
  6. FEMARA [Concomitant]
     Dosage: 2.5MG / DAY
     Route: 048
  7. COVERSYL                                /BEL/ [Concomitant]
     Dosage: 2MG / DAY
     Route: 048
  8. GLUCOPHAGE [Concomitant]
     Dosage: 500 MG, BID
     Route: 048
  9. DIAMICRON [Concomitant]
     Dosage: 80 MG, BID
     Route: 048
  10. SLOW SODIUM [Concomitant]
     Dosage: 600 MG, UNK
     Route: 048
  11. HALOPERIDOL DECANOATE [Concomitant]
     Dosage: 100 MG, Q2MO
     Route: 030
  12. ARIPIPRAZOLE [Concomitant]
     Dosage: 5MG MANE; 10MG NOCTE
     Route: 048
  13. QUETIAPINE [Concomitant]
     Dosage: 250MG / DAY
     Route: 048
  14. CLOZARIL [Suspect]
     Indication: SCHIZOPHRENIA
     Dosage: 38MG DAILY
     Route: 048
     Dates: start: 20080131
  15. CLOZARIL [Suspect]
     Dosage: 275MG / DAY
     Route: 048

REACTIONS (4)
  - MENORRHAGIA [None]
  - PLATELET COUNT INCREASED [None]
  - URINARY TRACT INFECTION [None]
  - WHITE BLOOD CELL COUNT INCREASED [None]
